FAERS Safety Report 21987877 (Version 1)
Quarter: 2023Q1

REPORT INFORMATION
  Report Type: Spontaneous
  Country: US (occurrence: US)
  Receive Date: 20230214
  Receipt Date: 20230214
  Transmission Date: 20230418
  Serious: No
  Sender: FDA-Public Use
  Company Number: US-TAKEDA-2023TUS014526

PATIENT
  Age: 53 Year
  Sex: Female
  Weight: 37 kg

DRUGS (2)
  1. GAMMAGARD LIQUID [Suspect]
     Active Substance: HUMAN IMMUNOGLOBULIN G
     Indication: Scleroderma
     Dosage: 40 GRAM, 4/WEEK
     Route: 050
  2. GAMMAGARD LIQUID [Suspect]
     Active Substance: HUMAN IMMUNOGLOBULIN G
     Indication: Myositis

REACTIONS (8)
  - Muscle rigidity [Unknown]
  - Muscle disorder [Unknown]
  - Connective tissue disorder [Unknown]
  - Incorrect drug administration rate [Unknown]
  - Product use issue [Unknown]
  - Nausea [Unknown]
  - Headache [Unknown]
  - Fatigue [Unknown]
